FAERS Safety Report 16930209 (Version 2)
Quarter: 2019Q4

REPORT INFORMATION
  Report Type: Report from Study
  Country: JP (occurrence: JP)
  Receive Date: 20191017
  Receipt Date: 20191224
  Transmission Date: 20200122
  Serious: Yes (Other)
  Sender: FDA-Public Use
  Company Number: JP-ACTELION-A-CH2017-164303

PATIENT
  Age: 16 Year
  Sex: Male

DRUGS (10)
  1. SELARA [Concomitant]
     Active Substance: EPLERENONE
  2. WARFARIN [Suspect]
     Active Substance: WARFARIN
     Dosage: 3.25 MG, QD
     Route: 048
     Dates: start: 20170831, end: 20171129
  3. ARTIST [Concomitant]
     Active Substance: CARVEDILOL
  4. OXYGEN. [Concomitant]
     Active Substance: OXYGEN
  5. BLOPRESS [Concomitant]
     Active Substance: CANDESARTAN CILEXETIL
  6. WARFARIN [Suspect]
     Active Substance: WARFARIN
     Dosage: 3.75 MG, QD
     Route: 048
     Dates: start: 20180220
  7. TAKELDA [Concomitant]
     Active Substance: ASPIRIN\LANSOPRAZOLE
  8. WARFARIN [Suspect]
     Active Substance: WARFARIN
     Dosage: 3.5 MG, QD
     Route: 048
     Dates: start: 20171130, end: 20180219
  9. OPSUMIT [Suspect]
     Active Substance: MACITENTAN
     Indication: PULMONARY ARTERIAL HYPERTENSION
     Dosage: 10 MG, OD
     Route: 048
     Dates: start: 20170822
  10. WARFARIN [Suspect]
     Active Substance: WARFARIN
     Indication: HYPOPLASTIC LEFT HEART SYNDROME
     Dosage: 3.5 MG, QD
     Route: 048
     Dates: start: 20170822, end: 20170829

REACTIONS (3)
  - Haematuria [Recovered/Resolved]
  - International normalised ratio increased [Recovered/Resolved]
  - Blood bilirubin increased [Recovered/Resolved]

NARRATIVE: CASE EVENT DATE: 20170829
